FAERS Safety Report 5816280-1 (Version None)
Quarter: 2008Q3

REPORT INFORMATION
  Report Type: 
  Country: None (occurrence: None)
  Receive Date: 20080717
  Receipt Date: 20080717
  Transmission Date: 20090109
  Serious: Yes (Disabling, Other)
  Sender: FDA-Public Use
  Company Number: None

PATIENT
  Sex: Male
  Weight: 63.5036 kg

DRUGS (5)
  1. LEVAQUIN [Suspect]
     Indication: INFECTION PROPHYLAXIS
     Dosage: 14 TABS 1 PER DAY PILL
     Dates: start: 20070919, end: 20071003
  2. STEROID CREAM [Concomitant]
  3. OXISTAT [Concomitant]
  4. SANTYL [Concomitant]
  5. ATARAX [Concomitant]

REACTIONS (18)
  - ANXIETY [None]
  - ASTHENIA [None]
  - BLISTER [None]
  - BURNING SENSATION [None]
  - FORMICATION [None]
  - HYPERSENSITIVITY [None]
  - INSOMNIA [None]
  - NIGHTMARE [None]
  - PAIN [None]
  - PANIC ATTACK [None]
  - PHOTOSENSITIVITY REACTION [None]
  - PLANTAR FASCIITIS [None]
  - RASH [None]
  - SKIN DISORDER [None]
  - SKIN EXFOLIATION [None]
  - TENDON DISORDER [None]
  - ULCER [None]
  - URTICARIA [None]
